FAERS Safety Report 4302553-0 (Version None)
Quarter: 2004Q1

REPORT INFORMATION
  Report Type: 
  Country: None (occurrence: None)
  Receive Date: 20040220
  Receipt Date: 20040121
  Transmission Date: 20041129
  Serious: Yes (Hospitalization)
  Sender: FDA-Public Use
  Company Number: MEDI-0001440

PATIENT
  Sex: Male

DRUGS (2)
  1. ETHYOL [Suspect]
     Indication: RADIOTHERAPY
     Dates: start: 20040102, end: 20040102
  2. RADIATION THERAPY [Concomitant]

REACTIONS (2)
  - LOCAL SWELLING [None]
  - MYOSITIS [None]
